FAERS Safety Report 15603834 (Version 1)
Quarter: 2018Q4

REPORT INFORMATION
  Report Type: Spontaneous
  Country: US (occurrence: US)
  Receive Date: 20181109
  Receipt Date: 20181109
  Transmission Date: 20190205
  Serious: Yes (Death, Other)
  Sender: FDA-Public Use
  Company Number: US-INCYTE CORPORATION-2018IN011419

PATIENT

DRUGS (2)
  1. JAKAFI [Suspect]
     Active Substance: RUXOLITINIB
     Indication: LEUKAEMIA
     Dosage: 5 MG, QD
     Route: 048
     Dates: start: 20150722, end: 20180526
  2. ALLOPURINOL. [Concomitant]
     Active Substance: ALLOPURINOL
     Indication: PRODUCT USED FOR UNKNOWN INDICATION
     Route: 065

REACTIONS (3)
  - Off label use [Unknown]
  - Inappropriate schedule of product administration [Unknown]
  - Leukaemia [Fatal]

NARRATIVE: CASE EVENT DATE: 20180819
